FAERS Safety Report 9668451 (Version 2)
Quarter: 2013Q4

REPORT INFORMATION
  Report Type: Report from Study
  Country: CA (occurrence: CA)
  Receive Date: 20131105
  Receipt Date: 20131112
  Transmission Date: 20140711
  Serious: Yes (Other)
  Sender: FDA-Public Use
  Company Number: CA-ROCHE-1299207

PATIENT
  Sex: Male
  Weight: 84.4 kg

DRUGS (4)
  1. RITUXAN [Suspect]
     Indication: RHEUMATOID ARTHRITIS
     Route: 042
     Dates: start: 20110321
  2. PLAQUENIL [Concomitant]
  3. PROPRANOLOL [Concomitant]
  4. SYMBICORT [Concomitant]
     Dosage: 1 PUFF 2X DAY
     Route: 065

REACTIONS (1)
  - Dyslipidaemia [Unknown]
